FAERS Safety Report 9144757 (Version 1)
Quarter: 2013Q1

REPORT INFORMATION
  Report Type: Spontaneous
  Country: US (occurrence: US)
  Receive Date: 20130306
  Receipt Date: 20130306
  Transmission Date: 20140127
  Serious: Yes (Hospitalization, Other)
  Sender: FDA-Public Use
  Company Number: US-ABBOTT-13P-163-1055334-00

PATIENT
  Age: 57 Year
  Sex: Female

DRUGS (171)
  1. DEPAKOTE [Suspect]
     Indication: MIGRAINE PROPHYLAXIS
  2. DEPAKOTE [Suspect]
     Indication: PRODUCT USED FOR UNKNOWN INDICATION
     Dates: start: 20120313, end: 20121005
  3. VICODIN [Suspect]
     Indication: PAIN
     Dosage: 1 TABLET EVERY 4-6 HOURS
     Route: 048
     Dates: start: 19990706, end: 19990902
  4. VICODIN [Suspect]
     Dosage: 7.5-500MG-2 TABLETS EVERY 8 HOURS
     Route: 048
     Dates: start: 20120110
  5. CELEBREX [Suspect]
     Indication: PAIN
     Route: 048
     Dates: start: 20040205, end: 20050124
  6. CELEBREX [Suspect]
     Indication: INFLAMMATORY PAIN
     Dosage: 1 OR 2 TIMES PER DAY
     Dates: start: 20050517, end: 20120921
  7. PAXIL [Suspect]
     Indication: PRODUCT USED FOR UNKNOWN INDICATION
     Dates: start: 19990907, end: 20110913
  8. PAXIL [Suspect]
     Dates: start: 20010913, end: 20030121
  9. PAXIL [Suspect]
     Route: 048
     Dates: start: 20050504, end: 20090720
  10. PAXIL [Suspect]
     Dosage: TAPERING OFF
     Route: 048
     Dates: start: 20090720, end: 20090911
  11. PAXIL CR [Suspect]
     Indication: PRODUCT USED FOR UNKNOWN INDICATION
     Dates: start: 20030121, end: 20030219
  12. PAXIL CR [Suspect]
     Dates: start: 20030219, end: 20050405
  13. PAXIL CR [Suspect]
     Dosage: 2 TABLETS PER DAY WITH FOOD
     Dates: start: 20040113, end: 20040205
  14. PAXIL CR [Suspect]
     Route: 048
     Dates: start: 20030319, end: 20030328
  15. ASPIRIN [Concomitant]
     Indication: ISCHAEMIC HEART DISEASE PROPHYLAXIS
     Dates: start: 20120809, end: 20120915
  16. DILANTIN [Concomitant]
     Indication: PRODUCT USED FOR UNKNOWN INDICATION
     Route: 048
     Dates: start: 19970904, end: 19990104
  17. PREMARIN [Concomitant]
     Indication: PRODUCT USED FOR UNKNOWN INDICATION
     Route: 048
     Dates: start: 19970904
  18. VASOTEC [Concomitant]
     Indication: PRODUCT USED FOR UNKNOWN INDICATION
     Route: 048
     Dates: start: 19970904, end: 19980217
  19. VASOTEC [Concomitant]
     Route: 048
     Dates: start: 19981215, end: 19981215
  20. VASOTEC [Concomitant]
     Route: 048
     Dates: start: 19981215, end: 19990104
  21. VASOTEC [Concomitant]
     Route: 048
     Dates: start: 19990104, end: 19990104
  22. SYNTHROID [Concomitant]
     Indication: HORMONE REPLACEMENT THERAPY
     Route: 048
     Dates: start: 19970904, end: 20001213
  23. SYNTHROID [Concomitant]
     Dates: start: 20001213, end: 20051202
  24. SYNTHROID [Concomitant]
     Route: 048
     Dates: start: 20051201
  25. VANCENASE AQ [Concomitant]
     Indication: PRODUCT USED FOR UNKNOWN INDICATION
     Dates: start: 19970904, end: 19990104
  26. VANCENASE AQ [Concomitant]
     Dosage: 1 SPRAY TWICE A DAY
     Dates: start: 19990104, end: 20000911
  27. ZITHROMAX [Concomitant]
     Indication: PRODUCT USED FOR UNKNOWN INDICATION
     Dates: start: 19980108, end: 19980217
  28. ZITHROMAX [Concomitant]
     Dosage: 2 TABLETS ON DAY 1, THEN 1 TABLET A DAY FOR 4 DAYS
     Dates: start: 20000324, end: 20000329
  29. ZITHROMAX [Concomitant]
     Dosage: 2 TABLETS ON DAY 1, THEN 1 TABLET A DAY FOR 4 DAYS
     Dates: start: 20010104, end: 20010109
  30. ZITHROMAX [Concomitant]
     Dosage: 2 TABLETS ON DAY 1, THEN 1 TABLET PER DAY FOR 4 DAYS
     Dates: start: 20011003, end: 20011008
  31. ZITHROMAX [Concomitant]
     Route: 048
     Dates: start: 20080519, end: 20080522
  32. GUAIFENESIN [Concomitant]
     Indication: PRODUCT USED FOR UNKNOWN INDICATION
     Route: 048
     Dates: start: 19980108, end: 19980519
  33. GUAIFENESIN [Concomitant]
     Dates: start: 20000324
  34. GUAIFENESIN [Concomitant]
     Dosage: 1-2 TABLET TWICE A DAY
     Dates: start: 20010104, end: 20040205
  35. CLARITIN [Concomitant]
     Indication: PRODUCT USED FOR UNKNOWN INDICATION
     Route: 048
     Dates: start: 19980217, end: 19990104
  36. DURA-VENT [Concomitant]
     Indication: PRODUCT USED FOR UNKNOWN INDICATION
     Route: 048
     Dates: start: 19980217, end: 19990104
  37. NASALCROM [Concomitant]
     Indication: PRODUCT USED FOR UNKNOWN INDICATION
     Dates: start: 19980217, end: 19990104
  38. NASALCROM [Concomitant]
     Dates: start: 19990104, end: 20040205
  39. BIAXIN [Concomitant]
     Indication: PRODUCT USED FOR UNKNOWN INDICATION
     Route: 048
     Dates: start: 19980519, end: 19990104
  40. SEREVENT [Concomitant]
     Indication: ASTHMA
     Dates: start: 19980519, end: 19990104
  41. SEREVENT [Concomitant]
     Indication: DYSPNOEA
     Dates: start: 20000328
  42. SEREVENT [Concomitant]
     Dosage: 2 PUFFS TWICE A DAY
     Dates: start: 20010104, end: 20010627
  43. FLOVENT [Concomitant]
     Indication: PRODUCT USED FOR UNKNOWN INDICATION
     Dates: start: 19980519, end: 19990104
  44. MEDROL [Concomitant]
     Indication: PRODUCT USED FOR UNKNOWN INDICATION
     Dates: start: 19980519, end: 19980519
  45. MIACALCIN [Concomitant]
     Indication: PRODUCT USED FOR UNKNOWN INDICATION
     Dates: start: 19980519, end: 20000324
  46. MIACALCIN [Concomitant]
     Dates: start: 20050510, end: 20050517
  47. MIACALCIN [Concomitant]
     Dates: start: 20110304, end: 20120110
  48. LAC-HYDRIN [Concomitant]
     Indication: PRODUCT USED FOR UNKNOWN INDICATION
     Dates: start: 19990104, end: 20000324
  49. ATACAND [Concomitant]
     Indication: PRODUCT USED FOR UNKNOWN INDICATION
     Route: 048
     Dates: start: 19990104, end: 20000324
  50. ATACAND [Concomitant]
     Dates: start: 20000324
  51. ATACAND [Concomitant]
     Route: 048
     Dates: start: 20120611, end: 20120809
  52. PRILOSEC [Concomitant]
     Indication: PRODUCT USED FOR UNKNOWN INDICATION
     Dates: start: 19990902, end: 20020405
  53. VIOXX [Concomitant]
     Indication: PAIN
     Dates: start: 19990902, end: 20000324
  54. VIOXX [Concomitant]
     Indication: INFLAMMATION
     Dosage: 1 TABLET PER DAY WITH FOOD
     Dates: start: 20011218, end: 20040113
  55. VIOXX [Concomitant]
     Dates: start: 20040113, end: 20040205
  56. AMITRIPTYLIN [Concomitant]
     Indication: PRODUCT USED FOR UNKNOWN INDICATION
     Dates: start: 19990907, end: 20010913
  57. CLONAZEPAM [Concomitant]
     Indication: PRODUCT USED FOR UNKNOWN INDICATION
     Dates: start: 19990907, end: 20000911
  58. PROVENTIL [Concomitant]
     Indication: PRODUCT USED FOR UNKNOWN INDICATION
     Dosage: 2 PUFFS EVERY 4-6 HOURS
     Dates: start: 20000324, end: 20010627
  59. AVAPRO [Concomitant]
     Indication: PRODUCT USED FOR UNKNOWN INDICATION
     Dates: start: 20010904
  60. AVAPRO [Concomitant]
     Dates: start: 20020314, end: 20040916
  61. AVAPRO [Concomitant]
     Route: 048
     Dates: start: 20110128
  62. PULMICORT [Concomitant]
     Indication: PRODUCT USED FOR UNKNOWN INDICATION
     Route: 055
     Dates: start: 20000328, end: 20011003
  63. ATROVENT [Concomitant]
     Indication: PRODUCT USED FOR UNKNOWN INDICATION
     Route: 055
     Dates: start: 20001009, end: 20010627
  64. DOXYCYCLINE HYCLATE [Concomitant]
     Indication: PRODUCT USED FOR UNKNOWN INDICATION
     Dates: start: 20001212, end: 20001222
  65. HUMIBID DM [Concomitant]
     Indication: PRODUCT USED FOR UNKNOWN INDICATION
     Dosage: 30-600MG
     Dates: start: 20001229, end: 20010104
  66. VITAMIN C [Concomitant]
     Indication: MALABSORPTION
     Dates: start: 20010104, end: 20050517
  67. VITAMIN C [Concomitant]
     Route: 048
     Dates: start: 20070404, end: 20120809
  68. CALCIUM [Concomitant]
     Indication: PRODUCT USED FOR UNKNOWN INDICATION
     Dates: start: 20010104
  69. SELENIUM [Concomitant]
     Indication: PRODUCT USED FOR UNKNOWN INDICATION
     Dates: start: 20010104, end: 20011003
  70. VITAMIN B [Concomitant]
     Indication: PRODUCT USED FOR UNKNOWN INDICATION
     Route: 048
     Dates: start: 20010104, end: 20050517
  71. BETA CAROTEN [Concomitant]
     Indication: PRODUCT USED FOR UNKNOWN INDICATION
     Dates: start: 20010104, end: 20050517
  72. FLONASE [Concomitant]
     Indication: PRODUCT USED FOR UNKNOWN INDICATION
     Dates: start: 20010104, end: 20011003
  73. FLONASE [Concomitant]
     Dates: start: 20011003, end: 20040205
  74. ADVAIR [Concomitant]
     Indication: PRODUCT USED FOR UNKNOWN INDICATION
     Dates: start: 20010627, end: 20011218
  75. ADVAIR [Concomitant]
     Dates: start: 20011218, end: 20080305
  76. ADVAIR [Concomitant]
     Dates: start: 20080305, end: 20110328
  77. COMBIVENT [Concomitant]
     Indication: ASTHMA
     Dosage: 1-2 PUFFS
     Dates: start: 20010627, end: 20011218
  78. COMBIVENT [Concomitant]
     Indication: DYSPNOEA
     Dates: start: 20040205, end: 20120110
  79. DUONEB [Concomitant]
     Indication: DYSPNOEA
     Dosage: IN NEBULIZER
     Dates: start: 20011218, end: 20050517
  80. TRAZODONE HCL [Concomitant]
     Indication: PRODUCT USED FOR UNKNOWN INDICATION
     Dates: start: 20010913
  81. DURATUSS DM [Concomitant]
     Indication: PRODUCT USED FOR UNKNOWN INDICATION
     Dates: start: 20011003, end: 20040205
  82. PREDNISONE [Concomitant]
     Indication: PRODUCT USED FOR UNKNOWN INDICATION
     Dosage: TAKE 4 TABS/2DAY, 3 TABS/2DAY, 2 TABS/2 DAY, 1 TAB/2 DAY, 1/2 TAB/2 DAYS
     Dates: start: 20011218, end: 20011228
  83. PREDNISONE [Concomitant]
     Dosage: TAKE 4 TABS/2DAY, 3 TABS/2DAY, 2 TABS/2 DAY, 1 TAB/2 DAY, 1/2 TAB/2 DAYS
     Dates: start: 20060201, end: 20060211
  84. PREDNISONE [Concomitant]
     Route: 048
     Dates: start: 20080522, end: 20080606
  85. ZYRTEC [Concomitant]
     Indication: HYPERSENSITIVITY
     Dosage: 1 TABLET PER DAY
     Dates: start: 20011218
  86. HYDROXYZINE HCL [Concomitant]
     Indication: PRODUCT USED FOR UNKNOWN INDICATION
     Dosage: 1-2 TABLETS EVERY 4-6 HOURS
     Dates: start: 20011218, end: 20040205
  87. FOLIC ACID [Concomitant]
     Indication: PRODUCT USED FOR UNKNOWN INDICATION
     Dates: start: 20011218, end: 20040224
  88. FOLIC ACID [Concomitant]
     Route: 048
     Dates: start: 20040224, end: 20071001
  89. NIZORAL [Concomitant]
     Indication: PRODUCT USED FOR UNKNOWN INDICATION
     Route: 061
     Dates: start: 20020314, end: 20020328
  90. GARLIC [Concomitant]
     Indication: PRODUCT USED FOR UNKNOWN INDICATION
     Route: 048
     Dates: start: 19970301, end: 20070404
  91. FIBERCON [Concomitant]
     Indication: PRODUCT USED FOR UNKNOWN INDICATION
     Dates: start: 20020315, end: 20040205
  92. FIBERCON [Concomitant]
     Route: 048
     Dates: start: 20070404, end: 20080305
  93. OAT BRAN [Concomitant]
     Indication: PRODUCT USED FOR UNKNOWN INDICATION
     Dates: start: 20010315, end: 20040205
  94. LASIX [Concomitant]
     Indication: PRODUCT USED FOR UNKNOWN INDICATION
     Dates: start: 20020405, end: 20040205
  95. K-DUR [Concomitant]
     Indication: PRODUCT USED FOR UNKNOWN INDICATION
     Dates: start: 20020504, end: 20040205
  96. ACIPHEX [Concomitant]
     Indication: PRODUCT USED FOR UNKNOWN INDICATION
     Route: 048
     Dates: start: 20020405, end: 20031105
  97. ACIPHEX [Concomitant]
     Route: 048
     Dates: start: 20031125
  98. ALBUTEROL [Concomitant]
     Indication: ASTHMA
     Dosage: 2 PUFFS EVERY 4-6 HOURS
     Dates: start: 20030219, end: 20040224
  99. ALBUTEROL [Concomitant]
     Indication: DYSPNOEA
  100. SINGULAIR [Concomitant]
     Indication: PRODUCT USED FOR UNKNOWN INDICATION
     Route: 048
     Dates: start: 20030321, end: 20040205
  101. LEVAQUIN [Concomitant]
     Indication: PRODUCT USED FOR UNKNOWN INDICATION
     Dates: start: 20030325, end: 20030625
  102. LEVAQUIN [Concomitant]
     Route: 048
     Dates: start: 20080107, end: 20080114
  103. NEXIUM [Concomitant]
     Indication: PRODUCT USED FOR UNKNOWN INDICATION
     Route: 048
     Dates: start: 20031105, end: 20031125
  104. NYSTATIN [Concomitant]
     Indication: PRODUCT USED FOR UNKNOWN INDICATION
     Dates: start: 20040205, end: 20040210
  105. NYSTATIN [Concomitant]
     Dates: start: 20050517, end: 20050522
  106. NYSTATIN [Concomitant]
     Dates: start: 20080107, end: 20080305
  107. NYSTATIN [Concomitant]
     Dosage: ONCE OR TWICE A DAY
     Dates: start: 20100813, end: 20110128
  108. NYSTATIN [Concomitant]
     Dates: start: 20110208, end: 20121005
  109. LIQUIBID-D [Concomitant]
     Indication: RESPIRATORY TRACT CONGESTION
     Dosage: TWICE A DAY
     Route: 048
     Dates: start: 20040224, end: 20050517
  110. AVALIDE [Concomitant]
     Indication: BLOOD PRESSURE MANAGEMENT
     Dosage: 12.5-300MG
     Route: 048
     Dates: start: 20040916, end: 20090602
  111. AVALIDE [Concomitant]
     Indication: PROPHYLAXIS
     Dosage: 300-25MG
     Route: 048
     Dates: start: 20090206, end: 20110128
  112. AVALIDE [Concomitant]
     Indication: RENAL DISORDER
  113. AVALIDE [Concomitant]
     Indication: ANGIOPATHY
  114. AMOXICILLIN [Concomitant]
     Indication: INFECTION
     Route: 048
     Dates: start: 20041122, end: 20041129
  115. AMOXICILLIN [Concomitant]
     Route: 048
     Dates: start: 20060201, end: 20060208
  116. FEOSOL [Concomitant]
     Indication: MINERAL SUPPLEMENTATION
     Route: 048
     Dates: start: 20041221, end: 20050517
  117. FEOSOL [Concomitant]
     Dosage: 1-2 TABLETS ONCE A DAY
     Route: 048
     Dates: start: 20050523, end: 20120809
  118. DIFLUCAN [Concomitant]
     Indication: FUNGAL INFECTION
     Dates: start: 20050330, end: 20050331
  119. DIFLUCAN [Concomitant]
     Dates: start: 20071005, end: 20071006
  120. CENTRUM SILVER [Concomitant]
     Indication: PRODUCT USED FOR UNKNOWN INDICATION
     Route: 048
     Dates: start: 20050517
  121. HYDROCODONE W/APAP [Concomitant]
     Indication: PAIN
     Dosage: 5-500MG-1 TABLET EVERY 4-6 HOURS
     Dates: start: 20050517, end: 20120110
  122. ZELNORM [Concomitant]
     Indication: PRODUCT USED FOR UNKNOWN INDICATION
     Route: 048
     Dates: start: 20051003, end: 20070404
  123. SPIRIVA HANDIHALER [Concomitant]
     Indication: PROPHYLAXIS
     Route: 048
     Dates: start: 20051006, end: 20071005
  124. SPIRIVA HANDIHALER [Concomitant]
     Indication: DYSPNOEA
     Route: 048
     Dates: start: 20120110
  125. SPIRIVA HANDIHALER [Concomitant]
     Indication: BRONCHITIS
  126. SPIRIVA HANDIHALER [Concomitant]
     Indication: EMPHYSEMA
  127. MUCINEX [Concomitant]
     Indication: RESPIRATORY TRACT CONGESTION
     Dosage: AS NEEDED
     Route: 054
     Dates: start: 20060201
  128. MUCINEX [Concomitant]
     Indication: SECRETION DISCHARGE
  129. PRAVACHOL [Concomitant]
     Indication: PRODUCT USED FOR UNKNOWN INDICATION
     Route: 048
     Dates: start: 20070302
  130. COLACE [Concomitant]
     Indication: CONSTIPATION PROPHYLAXIS
     Route: 048
     Dates: start: 20070404, end: 20080305
  131. MILK OF MAGNESIA [Concomitant]
     Indication: CONSTIPATION
     Dosage: AS NEEDED
     Route: 048
     Dates: start: 20070404, end: 20080305
  132. PHENERGAN [Concomitant]
     Indication: NAUSEA
     Dosage: UP TO 4 PER 24 HOURS
     Route: 048
     Dates: start: 20070412, end: 20071005
  133. BACTRIM DS [Concomitant]
     Indication: INFECTION
     Dosage: 800-160MG
     Route: 048
     Dates: start: 20071005, end: 20071012
  134. BACTRIM DS [Concomitant]
     Route: 048
     Dates: start: 20080908, end: 20080915
  135. BACTRIM DS [Concomitant]
     Dosage: 800-160MG
     Route: 048
     Dates: start: 20081020, end: 20081030
  136. BACTRIM DS [Concomitant]
     Dosage: 800-160MG
     Route: 048
     Dates: start: 20091209, end: 20091214
  137. BACTRIM DS [Concomitant]
     Route: 048
     Dates: start: 20121119, end: 20121124
  138. MYCELEX TROCHE [Concomitant]
     Indication: PRODUCT USED FOR UNKNOWN INDICATION
     Dates: start: 20071212, end: 20071224
  139. KEFLEX [Concomitant]
     Indication: PRODUCT USED FOR UNKNOWN INDICATION
     Route: 048
     Dates: start: 20080418, end: 20080428
  140. BONIVA [Concomitant]
     Indication: PRODUCT USED FOR UNKNOWN INDICATION
     Route: 048
     Dates: start: 20080519, end: 20090508
  141. XOPENEX [Concomitant]
     Indication: ASTHMA
     Dosage: IN NEBULIZER
     Dates: start: 20080522, end: 20110128
  142. XOPENEX [Concomitant]
     Indication: DYSPNOEA
     Dosage: EVERY 4-6 HOURS
     Dates: start: 20120110
  143. XOPENEX [Concomitant]
     Indication: COUGH
  144. XOPENEX [Concomitant]
     Indication: WHEEZING
  145. XOPENEX [Concomitant]
     Indication: CHEST DISCOMFORT
  146. HYDROCODONE/GUAIFENESIN [Concomitant]
     Indication: COUGH
     Dosage: 5ML EVERY 4-6 HOURS
     Route: 048
     Dates: start: 20080522, end: 20090121
  147. CIPRO [Concomitant]
     Indication: PRODUCT USED FOR UNKNOWN INDICATION
     Route: 048
     Dates: start: 20080912, end: 20080917
  148. CIPRO [Concomitant]
     Route: 048
     Dates: start: 20100111, end: 20100116
  149. ACTONEL [Concomitant]
     Indication: PRODUCT USED FOR UNKNOWN INDICATION
     Route: 048
     Dates: start: 20090508, end: 20110128
  150. NASONEX [Concomitant]
     Indication: PRODUCT USED FOR UNKNOWN INDICATION
     Dosage: EACH NOSTRIL 1-2 TIMES A DAY
     Dates: start: 20080825, end: 20090911
  151. MECLIZINE HCL [Concomitant]
     Indication: DIZZINESS
     Dosage: 1-2 TABLETS EVERY 4-6 HOURS
     Route: 048
     Dates: start: 20090911, end: 20090921
  152. CYMBALTA [Concomitant]
     Indication: ANXIETY
     Route: 048
     Dates: start: 20100127, end: 20100804
  153. CYMBALTA [Concomitant]
     Indication: DEPRESSION
     Route: 048
     Dates: start: 20100816, end: 20110128
  154. CYMBALTA [Concomitant]
     Indication: STRESS
  155. CYMBALTA [Concomitant]
     Indication: MOOD ALTERED
  156. WELCHOL [Concomitant]
     Indication: PRODUCT USED FOR UNKNOWN INDICATION
     Route: 048
     Dates: start: 20100219, end: 20100804
  157. DURAGESIC [Concomitant]
     Indication: PRODUCT USED FOR UNKNOWN INDICATION
     Dates: start: 20100615, end: 20110128
  158. CHOLESTYRAMINE LIGHT [Concomitant]
     Indication: PRODUCT USED FOR UNKNOWN INDICATION
     Dates: start: 20100804, end: 20110128
  159. HYDROCHLOROTH [Concomitant]
     Indication: BLOOD PRESSURE
     Route: 048
     Dates: start: 20110128
  160. HYDROCHLOROTH [Concomitant]
     Indication: SWELLING
  161. CARAFATE [Concomitant]
     Indication: PRODUCT USED FOR UNKNOWN INDICATION
     Route: 048
     Dates: start: 20110128, end: 20120110
  162. CARAFATE [Concomitant]
     Dosage: 2 TEASPOONS 3-4 TIMES A DAY
     Route: 048
     Dates: start: 20120202
  163. AMLODIPINE BESYLATE [Concomitant]
     Indication: PRODUCT USED FOR UNKNOWN INDICATION
     Route: 048
     Dates: start: 20110128
  164. TRAMADOL HCL [Concomitant]
     Indication: PAIN
     Dosage: UP TO 6 TABLETS IN 24 HOURS
     Route: 048
     Dates: start: 20110208, end: 20121005
  165. FLEXERIL [Concomitant]
     Indication: PRODUCT USED FOR UNKNOWN INDICATION
     Route: 048
     Dates: start: 20110208, end: 20110222
  166. VESICARE [Concomitant]
     Indication: PRODUCT USED FOR UNKNOWN INDICATION
     Route: 048
     Dates: start: 20110210
  167. ALENDRONATE SODIUM [Concomitant]
     Indication: PRODUCT USED FOR UNKNOWN INDICATION
     Route: 048
     Dates: start: 20110209, end: 20110304
  168. CYCLOBENZAPRINE HYDROCHLORIDE [Concomitant]
     Indication: PRODUCT USED FOR UNKNOWN INDICATION
     Route: 048
     Dates: start: 20110304
  169. ONDANSETRON HCL [Concomitant]
     Indication: NAUSEA
     Dosage: AS NEEDED
     Route: 048
     Dates: start: 20120202
  170. MIRALAX [Concomitant]
     Indication: PRODUCT USED FOR UNKNOWN INDICATION
     Dates: start: 20120921, end: 20121005
  171. CITRUCEL [Concomitant]
     Indication: PRODUCT USED FOR UNKNOWN INDICATION
     Dosage: 1-2 TABLETS 1-2 TIMES A DAY
     Route: 048
     Dates: start: 20121001

REACTIONS (111)
  - Gastrointestinal angiodysplasia [Recovering/Resolving]
  - Anaemia [Recovering/Resolving]
  - Gastrointestinal haemorrhage [Recovering/Resolving]
  - Kyphoscoliosis [Unknown]
  - Spinal osteoarthritis [Unknown]
  - Oesophageal stenosis [Unknown]
  - Oesophageal stenosis [Unknown]
  - Hiatus hernia [Unknown]
  - Chronic obstructive pulmonary disease [Unknown]
  - Gastrooesophageal reflux disease [Unknown]
  - Dilatation atrial [Unknown]
  - Gastroenteritis [Recovered/Resolved]
  - Renal failure chronic [Unknown]
  - Gastritis [Unknown]
  - Pulmonary hypertension [Unknown]
  - Pleural effusion [Recovered/Resolved]
  - Urethral stenosis [Unknown]
  - Pericardial effusion [Unknown]
  - Upper respiratory tract infection [Unknown]
  - Upper respiratory tract infection [Recovered/Resolved]
  - Bronchitis [Unknown]
  - Bronchitis [Recovered/Resolved]
  - Asthma [Unknown]
  - Hepatic function abnormal [Recovered/Resolved]
  - Hypercholesterolaemia [Unknown]
  - Arthropathy [Unknown]
  - Osteoporosis [Unknown]
  - Dyspnoea [Unknown]
  - Emphysema [Unknown]
  - Rhinitis allergic [Unknown]
  - Bronchitis [Unknown]
  - Bronchitis [Unknown]
  - Dyspnoea [Unknown]
  - Dyspnoea [Unknown]
  - Upper respiratory tract infection [Unknown]
  - Upper respiratory tract infection [Recovered/Resolved]
  - Acute sinusitis [Unknown]
  - Acute sinusitis [Recovered/Resolved]
  - Cerumen impaction [Unknown]
  - Cerumen impaction [Recovered/Resolved]
  - Lipoma [Unknown]
  - Bunion [Unknown]
  - Foot deformity [Unknown]
  - Urticaria [Unknown]
  - Urticaria [Recovered/Resolved]
  - Sciatica [Unknown]
  - Oedema [Unknown]
  - Seborrhoeic keratosis [Unknown]
  - Dyspnoea [Unknown]
  - Hypoxia [Unknown]
  - Large intestine polyp [Unknown]
  - Diverticulum [Unknown]
  - Hypothyroidism [Unknown]
  - Wheezing [Unknown]
  - Wheezing [Unknown]
  - Bronchitis [Unknown]
  - Bronchospasm [Recovered/Resolved]
  - Nasal congestion [Unknown]
  - Rotator cuff syndrome [Unknown]
  - Microcytic anaemia [Unknown]
  - Glucose tolerance impaired [Unknown]
  - Bronchitis [Recovered/Resolved]
  - Bronchospasm [Recovered/Resolved]
  - Blood creatine phosphokinase abnormal [Unknown]
  - Blood alkaline phosphatase increased [Recovered/Resolved]
  - Weight increased [Recovered/Resolved]
  - Anaemia [Unknown]
  - Breast mass [Unknown]
  - Alopecia [Unknown]
  - Melanocytic naevus [Unknown]
  - Fatigue [Unknown]
  - Eyelid ptosis [Unknown]
  - Cerumen impaction [Recovered/Resolved]
  - Fatigue [Recovered/Resolved]
  - Urinary tract infection [Unknown]
  - Epistaxis [Unknown]
  - Candida infection [Recovered/Resolved]
  - Haematuria [Unknown]
  - Oedema peripheral [Unknown]
  - Cellulitis [Unknown]
  - Asthma [Unknown]
  - Irritable bowel syndrome [Unknown]
  - Lymphadenopathy [Unknown]
  - Neck pain [Unknown]
  - Spinal osteoarthritis [Unknown]
  - Acute sinusitis [Unknown]
  - Pain [Unknown]
  - Libido decreased [Unknown]
  - Oedema peripheral [Unknown]
  - Vertigo positional [Unknown]
  - Dizziness [Unknown]
  - Nausea [Unknown]
  - Cystitis [Unknown]
  - Urine analysis abnormal [Unknown]
  - Depression [Unknown]
  - Intertrigo candida [Unknown]
  - Oesophageal candidiasis [Unknown]
  - Hypokalaemia [Recovered/Resolved]
  - Myalgia [Unknown]
  - Productive cough [Unknown]
  - Pyrexia [Unknown]
  - Oral candidiasis [Unknown]
  - Chest pain [Unknown]
  - Abdominal pain [Recovered/Resolved]
  - Nausea [Unknown]
  - Pyrexia [Recovered/Resolved]
  - Headache [Unknown]
  - Speech disorder [Recovered/Resolved]
  - Migraine [Recovered/Resolved]
  - Cervical radiculopathy [Unknown]
  - Cystitis [Unknown]
